FAERS Safety Report 10035259 (Version 1)
Quarter: 2014Q1

REPORT INFORMATION
  Report Type: Spontaneous
  Country: IE (occurrence: US)
  Receive Date: 20140325
  Receipt Date: 20140325
  Transmission Date: 20141002
  Serious: Yes (Death, Hospitalization)
  Sender: FDA-Public Use
  Company Number: 2014SP001503

PATIENT
  Age: 71 Year
  Sex: Female
  Weight: 61.8 kg

DRUGS (11)
  1. FLUOROURACIL [Suspect]
     Indication: COLORECTAL CANCER
     Route: 040
     Dates: start: 20121218
  2. FLUOROURACIL [Suspect]
     Indication: COLORECTAL CANCER
     Route: 042
  3. IRINOTECAN [Suspect]
     Indication: COLORECTAL CANCER
     Route: 042
     Dates: start: 20121218
  4. FOLINIC ACID [Suspect]
     Indication: COLORECTAL CANCER
     Route: 042
     Dates: start: 20121218
  5. HYDROCHLOROTHIAZIDE [Concomitant]
     Dates: start: 20120410
  6. ESTROGENS CONJUGATED [Concomitant]
     Dates: start: 20120410
  7. POTASSIUM [Concomitant]
     Dates: start: 20120410
  8. OXYCODONE HYDROCHLORIDE [Concomitant]
     Dates: start: 20121220
  9. PARACETAMOL [Concomitant]
     Dates: start: 20121220
  10. MULTIVITAMIN [Concomitant]
     Dates: start: 20120410
  11. CALCIUM CARBONATE [Concomitant]
     Dates: start: 20120410

REACTIONS (16)
  - Tumour lysis syndrome [Recovered/Resolved with Sequelae]
  - Asthenia [Not Recovered/Not Resolved]
  - Mental disorder [Recovered/Resolved with Sequelae]
  - Abdominal pain [Recovered/Resolved with Sequelae]
  - Constipation [Recovered/Resolved with Sequelae]
  - Vomiting [Recovered/Resolved with Sequelae]
  - Tremor [Recovered/Resolved with Sequelae]
  - Gait disturbance [Recovered/Resolved with Sequelae]
  - Renal failure acute [Recovered/Resolved with Sequelae]
  - Electrolyte imbalance [Recovered/Resolved with Sequelae]
  - Hepatic failure [Recovered/Resolved with Sequelae]
  - Bacterial infection [Unknown]
  - Pyrexia [Unknown]
  - Nosocomial infection [Unknown]
  - Pleural effusion [Unknown]
  - Swelling [Not Recovered/Not Resolved]
